FAERS Safety Report 7202671-3 (Version None)
Quarter: 2010Q4

REPORT INFORMATION
  Report Type: 
  Country: None (occurrence: None)
  Receive Date: 20101229
  Receipt Date: 20101216
  Transmission Date: 20110411
  Serious: Yes (Other)
  Sender: FDA-Public Use
  Company Number: IL-ACTELION-A-CH2010-42890

PATIENT
  Age: 50 Year
  Sex: Female

DRUGS (9)
  1. TRACLEER [Suspect]
     Indication: SCLERODERMA
     Dosage: 125 MG, BID
     Route: 048
     Dates: start: 20090301, end: 20101101
  2. TRACLEER [Suspect]
     Dosage: 62.5 MG, BID
     Route: 048
     Dates: start: 20090201, end: 20090301
  3. TRACLEER [Suspect]
     Dosage: UNK
     Route: 048
     Dates: start: 20100101
  4. METHOTREXATE [Concomitant]
  5. FOLIC ACID [Concomitant]
  6. WARFARIN [Concomitant]
  7. COLCHICINE [Concomitant]
  8. ASPIRIN [Concomitant]
  9. FUROSEMIDE [Concomitant]

REACTIONS (3)
  - DYSPNOEA [None]
  - OEDEMA [None]
  - OEDEMA PERIPHERAL [None]
